FAERS Safety Report 8974700 (Version 1)
Quarter: 2012Q4

REPORT INFORMATION
  Report Type: Spontaneous
  Country: US (occurrence: None)
  Receive Date: 20121217
  Receipt Date: 20121217
  Transmission Date: 20130627
  Serious: Yes (Hospitalization)
  Sender: FDA-Public Use
  Company Number: None

PATIENT
  Age: 96 Year
  Sex: Female

DRUGS (2)
  1. DILTIAZEM [Suspect]
     Indication: DYSRHYTHMIAS
     Dosage: 120 MG  QAM  PO
     Route: 048
  2. DIGOXIN [Concomitant]

REACTIONS (4)
  - Bradycardia [None]
  - Unresponsive to stimuli [None]
  - Intentional drug misuse [None]
  - Incorrect dose administered [None]
